FAERS Safety Report 13814888 (Version 8)
Quarter: 2017Q3

REPORT INFORMATION
  Report Type: Spontaneous
  Country: US (occurrence: US)
  Receive Date: 20170731
  Receipt Date: 20170914
  Transmission Date: 20171127
  Serious: Yes (Hospitalization)
  Sender: FDA-Public Use
  Company Number: US-CELGENEUS-USA-20170706599

PATIENT
  Age: 82 Year
  Sex: Male
  Weight: 80.81 kg

DRUGS (1)
  1. POMALYST [Suspect]
     Active Substance: POMALIDOMIDE
     Indication: PLASMA CELL MYELOMA
     Dosage: 3 MILLIGRAM
     Route: 048
     Dates: start: 20160115

REACTIONS (4)
  - Lethargy [Unknown]
  - Tremor [Unknown]
  - Speech disorder [Unknown]
  - Meningitis pneumococcal [Unknown]

NARRATIVE: CASE EVENT DATE: 20170720
